FAERS Safety Report 4939136-5 (Version None)
Quarter: 2006Q1

REPORT INFORMATION
  Report Type: 
  Country: None (occurrence: None)
  Receive Date: 20060306
  Receipt Date: 20060222
  Transmission Date: 20060701
  Serious: Yes (Life-Threatening, Other)
  Sender: FDA-Public Use
  Company Number: 2006026320

PATIENT
  Age: 50 Year
  Sex: Male

DRUGS (3)
  1. VIAGRA [Suspect]
     Indication: ERECTILE DYSFUNCTION
     Dosage: 50 MG (50 MG, ONCE), ORAL
     Route: 048
  2. DEPAKENE [Concomitant]
  3. CARBAMAZEPINE [Concomitant]

REACTIONS (1)
  - EPILEPSY [None]
